FAERS Safety Report 15536976 (Version 2)
Quarter: 2020Q2

REPORT INFORMATION
  Report Type: Spontaneous
  Country: FR (occurrence: FR)
  Receive Date: 20181022
  Receipt Date: 20200529
  Transmission Date: 20200713
  Serious: Yes (Death)
  Sender: FDA-Public Use
  Company Number: FR-TEVA-2018-FR-966856

PATIENT
  Age: 19 Year
  Sex: Male

DRUGS (7)
  1. ZOLPIDEM [Suspect]
     Active Substance: ZOLPIDEM TARTRATE
     Dosage: UNKNOWN
     Dates: start: 201804, end: 20180402
  2. THERALENE [Suspect]
     Active Substance: TRIMEPRAZINE
     Dosage: UNKNOWN
     Dates: start: 201804, end: 20180402
  3. QUETIAPINE. [Suspect]
     Active Substance: QUETIAPINE
     Dosage: UNKNOWN
     Route: 065
     Dates: start: 201804, end: 20180402
  4. VENLAFAXINE [Suspect]
     Active Substance: VENLAFAXINE HYDROCHLORIDE
     Dosage: UNKNOWN
     Route: 065
     Dates: start: 201804, end: 20180402
  5. DAFALGAN CODEINE [Suspect]
     Active Substance: ACETAMINOPHEN\CODEINE PHOSPHATE
     Dosage: UNKNOWN
     Dates: start: 201804, end: 20180402
  6. ALPRAZOLAM. [Suspect]
     Active Substance: ALPRAZOLAM
     Dosage: UNKNOWN
     Dates: start: 201804, end: 20180402
  7. SULPIRIDE [Suspect]
     Active Substance: SULPIRIDE
     Dosage: UNKNOWN
     Route: 065
     Dates: start: 201804, end: 20180402

REACTIONS (1)
  - Poisoning deliberate [Fatal]

NARRATIVE: CASE EVENT DATE: 201804
